FAERS Safety Report 16911300 (Version 1)
Quarter: 2019Q4

REPORT INFORMATION
  Report Type: Spontaneous
  Country: US (occurrence: US)
  Receive Date: 20191013
  Receipt Date: 20191013
  Transmission Date: 20200122
  Serious: No
  Sender: FDA-Public Use
  Company Number: US-TEVA-2019-US-1120309

PATIENT
  Sex: Female

DRUGS (2)
  1. CLONAZEPAM TABLET ACTAVIS [Suspect]
     Active Substance: CLONAZEPAM
     Indication: GENERALISED ANXIETY DISORDER
     Route: 065
  2. CLONAZEPAM TABLET ACTAVIS [Suspect]
     Active Substance: CLONAZEPAM
     Route: 065

REACTIONS (9)
  - Thinking abnormal [Unknown]
  - Diarrhoea [Unknown]
  - Anxiety [Unknown]
  - Paranoia [Unknown]
  - Insomnia [Unknown]
  - Fear [Unknown]
  - Drug ineffective [Unknown]
  - Product substitution issue [Unknown]
  - Skin burning sensation [Unknown]
